FAERS Safety Report 15266789 (Version 4)
Quarter: 2019Q3

REPORT INFORMATION
  Report Type: Spontaneous
  Country: RO (occurrence: RO)
  Receive Date: 20180810
  Receipt Date: 20190705
  Transmission Date: 20191004
  Serious: Yes (Death, Other)
  Sender: FDA-Public Use
  Company Number: RO-VALIDUS PHARMACEUTICALS LLC-RO-2018VAL000875

PATIENT

DRUGS (8)
  1. DOPAMINE [Concomitant]
     Active Substance: DOPAMINE HYDROCHLORIDE
     Indication: CARDIAC FAILURE
     Dosage: UNK
     Route: 065
  2. DOBUTAMINE [Concomitant]
     Active Substance: DOBUTAMINE HYDROCHLORIDE
     Indication: CARDIAC FAILURE
     Dosage: UNK
     Route: 065
  3. FOLIC ACID. [Concomitant]
     Active Substance: FOLIC ACID
     Indication: END STAGE RENAL DISEASE
     Dosage: 5 MG, QD (5 MG, 1 IN 1 D)
     Route: 065
  4. OXYGEN. [Concomitant]
     Active Substance: OXYGEN
     Indication: HYPOXIA
     Dosage: UNK
     Route: 065
  5. CALCIUM CARBONATE. [Suspect]
     Active Substance: CALCIUM CARBONATE
     Indication: END STAGE RENAL DISEASE
     Dosage: 1000 MG, TID (3000 MG,1 IN 1 D)
     Route: 065
  6. DEXAMETHASONE. [Concomitant]
     Active Substance: DEXAMETHASONE
     Indication: CEREBRAL OEDEMA MANAGEMENT
     Dosage: UNK
     Route: 065
  7. CALCITRIOL. [Suspect]
     Active Substance: CALCITRIOL
     Indication: END STAGE RENAL DISEASE
     Dosage: 0.5 ?G, 1 IN 1 D
     Route: 065
  8. DIAZEPAM. [Concomitant]
     Active Substance: DIAZEPAM
     Indication: SEIZURE
     Dosage: UNK
     Route: 065

REACTIONS (10)
  - Hypoalbuminaemia [Unknown]
  - Seizure [Unknown]
  - Hydronephrosis [Unknown]
  - Cardiac failure congestive [Unknown]
  - Hyperphosphataemia [Unknown]
  - Pulmonary calcification [Fatal]
  - Hyperparathyroidism secondary [Unknown]
  - Respiratory failure [Unknown]
  - Calciphylaxis [Fatal]
  - Cardio-respiratory arrest [Unknown]
